FAERS Safety Report 10370839 (Version 1)
Quarter: 2014Q3

REPORT INFORMATION
  Report Type: Spontaneous
  Country: US (occurrence: None)
  Receive Date: 20140807
  Receipt Date: 20140807
  Transmission Date: 20150326
  Serious: Yes (Hospitalization)
  Sender: FDA-Public Use
  Company Number: None

PATIENT
  Age: 53 Year
  Sex: Female
  Weight: 71 kg

DRUGS (2)
  1. RIBAVIRIN. [Suspect]
     Active Substance: RIBAVIRIN
     Indication: HEPATITIS C
     Dosage: 600 MG QAM + 400MG Q PM
     Route: 048
     Dates: start: 20140224
  2. SOVALDI [Suspect]
     Active Substance: SOFOSBUVIR
     Indication: HEPATITIS C
     Route: 048
     Dates: start: 20140224

REACTIONS (6)
  - Vomiting [None]
  - Urinary tract infection [None]
  - Abdominal pain [None]
  - Anaemia [None]
  - Nausea [None]
  - Thrombocytopenia [None]

NARRATIVE: CASE EVENT DATE: 20140506
